FAERS Safety Report 10228792 (Version 1)
Quarter: 2014Q2

REPORT INFORMATION
  Report Type: Spontaneous
  Country: FR (occurrence: FR)
  Receive Date: 20140610
  Receipt Date: 20140610
  Transmission Date: 20141212
  Serious: Yes (Life-Threatening, Other)
  Sender: FDA-Public Use
  Company Number: FR-BRISTOL-MYERS SQUIBB COMPANY-20862827

PATIENT
  Age: 52 Year
  Sex: Male

DRUGS (10)
  1. CARMUSTINE [Suspect]
     Indication: TRANSPLANT
     Route: 042
     Dates: start: 20140211
  2. ETOPOSIDE [Suspect]
     Indication: TRANSPLANT
     Dates: start: 20140211
  3. LYRICA [Concomitant]
     Route: 046
  4. ARACYTINE [Concomitant]
     Indication: TRANSPLANT
     Route: 042
     Dates: start: 20140211
  5. ALKERAN [Concomitant]
     Indication: TRANSPLANT
     Dates: start: 20140211
  6. LASIX [Concomitant]
     Route: 042
  7. TAHOR [Concomitant]
  8. SPECIAFOLDINE [Concomitant]
  9. EUPANTOL [Concomitant]
  10. EUPRESSYL [Concomitant]

REACTIONS (10)
  - Anaphylactoid shock [Recovered/Resolved]
  - Respiratory failure [Unknown]
  - Renal failure acute [Unknown]
  - Hyperkalaemia [Unknown]
  - Weight increased [Unknown]
  - Sepsis [Unknown]
  - Furuncle [Unknown]
  - Escherichia infection [Unknown]
  - Hepatic failure [Unknown]
  - Aplasia [Recovered/Resolved]
